FAERS Safety Report 10654861 (Version 1)
Quarter: 2014Q4

REPORT INFORMATION
  Report Type: Spontaneous
  Country: US (occurrence: None)
  Receive Date: 20141215
  Receipt Date: 20141215
  Transmission Date: 20150529
  Serious: No
  Sender: FDA-Public Use
  Company Number: None

PATIENT
  Age: 21 Year
  Sex: Female
  Weight: 106.6 kg

DRUGS (1)
  1. ORTHO EVRA [Suspect]
     Active Substance: ETHINYL ESTRADIOL\NORELGESTROMIN
     Dosage: ONCE WEEKLY, APPLIED AS MEDICATED PATCH TO SKIN
     Dates: start: 20141206, end: 20141213

REACTIONS (7)
  - Product adhesion issue [None]
  - Product quality issue [None]
  - Application site erosion [None]
  - Application site pain [None]
  - Wound [None]
  - Application site reaction [None]
  - Application site rash [None]

NARRATIVE: CASE EVENT DATE: 20141213
